FAERS Safety Report 20507025 (Version 1)
Quarter: 2022Q1

REPORT INFORMATION
  Report Type: Spontaneous
  Country: US (occurrence: None)
  Receive Date: 20220222
  Receipt Date: 20220222
  Transmission Date: 20220424
  Serious: Yes (Disabling)
  Sender: FDA-Public Use
  Company Number: None

PATIENT
  Age: 76 Year
  Sex: Female
  Weight: 67.5 kg

DRUGS (1)
  1. MYRBETRIQ [Suspect]
     Active Substance: MIRABEGRON
     Indication: Urinary incontinence
     Dosage: OTHER QUANTITY : 30 TABLET(S);?
     Route: 048
     Dates: start: 20220120, end: 20220220

REACTIONS (6)
  - Headache [None]
  - Dizziness [None]
  - Fatigue [None]
  - Orthostatic hypotension [None]
  - Postural orthostatic tachycardia syndrome [None]
  - Economic problem [None]

NARRATIVE: CASE EVENT DATE: 20220120
